FAERS Safety Report 15783294 (Version 1)
Quarter: 2019Q1

REPORT INFORMATION
  Report Type: Spontaneous
  Country: CN (occurrence: CN)
  Receive Date: 20190102
  Receipt Date: 20190102
  Transmission Date: 20190417
  Serious: Yes (Other)
  Sender: FDA-Public Use
  Company Number: CN-OTSUKA-2018_040207

PATIENT
  Age: 30 Year
  Sex: Male
  Weight: 57 kg

DRUGS (1)
  1. BUSULFEX [Suspect]
     Active Substance: BUSULFAN
     Indication: BONE MARROW FAILURE
     Dosage: 50 MG, QID
     Route: 042
     Dates: start: 20180730, end: 20180731

REACTIONS (2)
  - Product use in unapproved indication [Unknown]
  - Epilepsy [Recovered/Resolved]

NARRATIVE: CASE EVENT DATE: 20180806
